FAERS Safety Report 10979159 (Version 3)
Quarter: 2015Q2

REPORT INFORMATION
  Report Type: Spontaneous
  Country: US (occurrence: US)
  Receive Date: 20150402
  Receipt Date: 20150415
  Transmission Date: 20150821
  Serious: Yes (Death)
  Sender: FDA-Public Use
  Company Number: CHPA2015US004468

PATIENT
  Age: 94 Year
  Sex: Male

DRUGS (1)
  1. VOLTAREN [Suspect]
     Active Substance: DICLOFENAC SODIUM
     Indication: MUSCULOSKELETAL PAIN
     Dosage: UNK, Q4H
     Route: 061
     Dates: start: 201009, end: 201104

REACTIONS (5)
  - Drug ineffective for unapproved indication [Unknown]
  - Off label use [Unknown]
  - Bone cancer [Fatal]
  - Drug administered at inappropriate site [Unknown]
  - Bone pain [Fatal]

NARRATIVE: CASE EVENT DATE: 2010
